FAERS Safety Report 9795776 (Version 1)
Quarter: 2014Q1

REPORT INFORMATION
  Report Type: Spontaneous
  Country: FR (occurrence: FR)
  Receive Date: 20140103
  Receipt Date: 20140103
  Transmission Date: 20141002
  Serious: Yes (Other)
  Sender: FDA-Public Use
  Company Number: FR-JNJFOC-20140100454

PATIENT
  Age: 78 Year
  Sex: Female
  Weight: 52.15 kg

DRUGS (6)
  1. XARELTO [Suspect]
     Indication: CEREBROVASCULAR ACCIDENT PROPHYLAXIS
     Route: 048
     Dates: start: 20130202, end: 20131104
  2. XARELTO [Suspect]
     Indication: ATRIAL FIBRILLATION
     Route: 048
     Dates: start: 20130202, end: 20131104
  3. LASILIX [Concomitant]
     Indication: HYPERTENSION
     Route: 048
     Dates: start: 20130129, end: 20130404
  4. HEMIGOXINE [Concomitant]
     Indication: ATRIAL FIBRILLATION
     Route: 048
     Dates: start: 20130129
  5. HEMIGOXINE [Concomitant]
     Indication: CEREBROVASCULAR ACCIDENT PROPHYLAXIS
     Route: 048
     Dates: start: 20130129
  6. TEMERIT [Concomitant]
     Indication: HYPERTENSION
     Route: 048
     Dates: start: 20130129

REACTIONS (2)
  - Oedema peripheral [Recovered/Resolved]
  - Epistaxis [Recovered/Resolved]
